FAERS Safety Report 24314191 (Version 3)
Quarter: 2025Q1

REPORT INFORMATION
  Report Type: Spontaneous
  Country: JP (occurrence: JP)
  Receive Date: 20240912
  Receipt Date: 20250319
  Transmission Date: 20250409
  Serious: Yes (Other)
  Sender: JOHNSON AND JOHNSON
  Company Number: JP-JNJFOC-20240920291

PATIENT
  Age: 5 Decade
  Sex: Female

DRUGS (4)
  1. EPOPROSTENOL SODIUM [Suspect]
     Active Substance: EPOPROSTENOL SODIUM
     Indication: Heritable pulmonary arterial hypertension
     Route: 041
     Dates: start: 20230210, end: 2023
  2. EPOPROSTENOL SODIUM [Suspect]
     Active Substance: EPOPROSTENOL SODIUM
     Dosage: 57NG/KG/MIN
     Route: 041
     Dates: start: 202309
  3. OPSUMIT [Concomitant]
     Active Substance: MACITENTAN
     Indication: Heritable pulmonary arterial hypertension
     Route: 048
     Dates: start: 20230210
  4. TADALAFIL [Concomitant]
     Active Substance: TADALAFIL
     Indication: Heritable pulmonary arterial hypertension
     Route: 048
     Dates: start: 20230210

REACTIONS (1)
  - Immunoglobulin G4 related disease [Recovering/Resolving]

NARRATIVE: CASE EVENT DATE: 20230915
